FAERS Safety Report 16140305 (Version 1)
Quarter: 2019Q2

REPORT INFORMATION
  Report Type: Spontaneous
  Country: US (occurrence: US)
  Receive Date: 20190329
  Receipt Date: 20190329
  Transmission Date: 20190711
  Serious: Yes (Hospitalization, Other)
  Sender: FDA-Public Use
  Company Number: None

PATIENT
  Age: 51 Year
  Sex: Female

DRUGS (13)
  1. AMLODIPINE [Concomitant]
     Active Substance: AMLODIPINE BESYLATE
  2. OMEPRAZOLE TAB 20MG [Concomitant]
  3. PREDNISONE TAB 5MG [Concomitant]
     Active Substance: PREDNISONE
  4. TEMAZEPAM CAP 15MG [Concomitant]
  5. BENLYSTA [Suspect]
     Active Substance: BELIMUMAB
     Indication: SYSTEMIC LUPUS ERYTHEMATOSUS
     Dosage: ?          OTHER FREQUENCY:ONCE WEEKLY;?
     Route: 058
     Dates: start: 20171207
  6. AMITRIPTYLIN TAB 50MG [Concomitant]
  7. GABAPENTIN CAP 100MG [Concomitant]
  8. HYDROXYCHLOR TAB 200MG [Concomitant]
     Active Substance: HYDROXYCHLOROQUINE
  9. TRAMADOL HCL TAB 50MG [Concomitant]
  10. SERTRALINE TAB 50MG [Concomitant]
  11. HYDROXYZ HCL TAB 25MG [Concomitant]
  12. MELOXICAM TAB 15MG [Concomitant]
     Active Substance: MELOXICAM
  13. SIMVASTATIN TAB 20MG [Concomitant]

REACTIONS (1)
  - Systemic lupus erythematosus [None]

NARRATIVE: CASE EVENT DATE: 20190324
